FAERS Safety Report 8560042-1 (Version None)
Quarter: 2012Q3

REPORT INFORMATION
  Report Type: 
  Country: None (occurrence: None)
  Receive Date: 20120802
  Receipt Date: 20120726
  Transmission Date: 20120928
  Serious: Yes (Hospitalization)
  Sender: FDA-Public Use
  Company Number: KR-ABBOTT-12P-090-0919179-00

PATIENT
  Age: 37 Year
  Sex: Male

DRUGS (4)
  1. HUMIRA [Suspect]
     Indication: CROHN'S DISEASE
     Route: 058
     Dates: start: 20110812, end: 20120622
  2. HUMIRA [Suspect]
     Route: 058
     Dates: start: 20120711
  3. PENTASA [Concomitant]
     Indication: CROHN'S DISEASE
     Route: 048
  4. FOLIC ACID [Concomitant]
     Indication: CROHN'S DISEASE
     Route: 048

REACTIONS (16)
  - GASTROINTESTINAL INFLAMMATION [None]
  - COUGH [None]
  - CONJUNCTIVITIS [None]
  - NASOPHARYNGITIS [None]
  - SYNCOPE [None]
  - HEADACHE [None]
  - INTESTINAL HAEMORRHAGE [None]
  - GASTRIC DISORDER [None]
  - HERPES ZOSTER [None]
  - ACNE [None]
  - PRODUCTIVE COUGH [None]
  - SECRETION DISCHARGE [None]
  - ACTIVITIES OF DAILY LIVING IMPAIRED [None]
  - WEIGHT DECREASED [None]
  - FORMICATION [None]
  - DIARRHOEA [None]
